FAERS Safety Report 8955413 (Version 1)
Quarter: 2012Q4

REPORT INFORMATION
  Report Type: 
  Country: US (occurrence: US)
  Receive Date: 20121207
  Receipt Date: 20121207
  Transmission Date: 20130627
  Serious: No
  Sender: FDA-Public Use
  Company Number: US-009507513-1212USA002880

PATIENT
  Sex: Female
  Weight: 81.63 kg

DRUGS (8)
  1. ZEGERID OTC CAPSULES [Suspect]
     Indication: GASTROOESOPHAGEAL REFLUX DISEASE
     Dosage: 10 mg, Unknown
     Route: 048
     Dates: start: 201005
  2. ZEGERID OTC CAPSULES [Suspect]
     Indication: PAIN
  3. ZEGERID OTC CAPSULES [Suspect]
     Indication: MEDICAL OBSERVATION
  4. VITAMIN D (UNSPECIFIED) [Concomitant]
     Indication: VITAMIN D DECREASED
     Dosage: UNK, Unknown
  5. IRON (UNSPECIFIED) [Concomitant]
     Indication: ANAEMIA
     Dosage: UNK, Unknown
  6. ATIVAN [Concomitant]
     Indication: ANXIETY
     Dosage: UNK, Unknown
  7. LOPRESSOR [Concomitant]
     Indication: TACHYCARDIA
     Dosage: UNK, Unknown
  8. ZYRTEC-D [Concomitant]
     Indication: HYPERSENSITIVITY
     Dosage: UNK, Unknown

REACTIONS (1)
  - Overdose [Unknown]
